FAERS Safety Report 8770937 (Version 2)
Quarter: 2012Q4

REPORT INFORMATION
  Report Type: 
  Country: RU (occurrence: RU)
  Receive Date: 20120906
  Receipt Date: 20121001
  Transmission Date: 20130627
  Serious: Yes (Hospitalization, Other)
  Sender: FDA-Public Use
  Company Number: RU-BAYER-2012-092331

PATIENT
  Age: 63 Year
  Sex: Female

DRUGS (6)
  1. CIPROFLOXACIN [Suspect]
     Indication: PNEUMONIA
     Dosage: UNK
     Dates: start: 20051123, end: 20051123
  2. CEFOTAXIME [Suspect]
     Indication: PNEUMONIA
     Dosage: UNK
     Dates: start: 200511, end: 200511
  3. METRONIDAZOLE [Suspect]
     Indication: PNEUMONIA
     Dosage: UNK
     Dates: start: 200511
  4. AZITHROMYCIN [Suspect]
     Indication: PNEUMONIA
     Dosage: UNK
     Dates: start: 200511
  5. ENALAPRIL [Concomitant]
     Dosage: 10 mg, QD
     Route: 048
  6. DIFLUCAN [Suspect]
     Dosage: 400 mg, TID

REACTIONS (2)
  - Alveolitis allergic [Recovering/Resolving]
  - Pulmonary fibrosis [Recovering/Resolving]
